FAERS Safety Report 6537342-X (Version None)
Quarter: 2010Q1

REPORT INFORMATION
  Report Type: 
  Country: None (occurrence: None)
  Receive Date: 20100114
  Receipt Date: 20091207
  Transmission Date: 20100710
  Serious: No
  Sender: FDA-Public Use
  Company Number: US-BAYER-200942365NA

PATIENT
  Age: 32 Year
  Sex: Female
  Weight: 61 kg

DRUGS (2)
  1. MIRENA [Suspect]
     Indication: DRUG USE FOR UNKNOWN INDICATION
     Dosage: CONTINUOUS
     Route: 015
     Dates: end: 20090901
  2. ALBUTEROL SULATE [Concomitant]
     Indication: DRUG USE FOR UNKNOWN INDICATION
     Dosage: UNKNOWN DOSAGE

REACTIONS (3)
  - ANXIETY [None]
  - DIZZINESS [None]
  - NAUSEA [None]
